FAERS Safety Report 4466468-X (Version None)
Quarter: 2004Q4

REPORT INFORMATION
  Report Type: 
  Country: None (occurrence: None)
  Receive Date: 20041005
  Receipt Date: 20041001
  Transmission Date: 20050328
  Serious: Yes (Hospitalization)
  Sender: FDA-Public Use
  Company Number: GR-MERCK-0410GRC00002

PATIENT
  Age: 59 Year
  Sex: Male
  Weight: 52 kg

DRUGS (3)
  1. METHYLPREDNISOLONE [Concomitant]
     Indication: ADRENAL INSUFFICIENCY
     Route: 048
     Dates: start: 19800101
  2. LOSEC (OMEPRAZOLE) [Concomitant]
     Indication: PROPHYLAXIS
     Route: 048
     Dates: start: 19990101
  3. VIOXX [Suspect]
     Indication: ANKYLOSING SPONDYLITIS
     Route: 048
     Dates: start: 19991001, end: 20040930

REACTIONS (1)
  - MYOCARDIAL INFARCTION [None]
